FAERS Safety Report 14565822 (Version 1)
Quarter: 2018Q1

REPORT INFORMATION
  Report Type: Spontaneous
  Country: PL (occurrence: PL)
  Receive Date: 20180223
  Receipt Date: 20180223
  Transmission Date: 20180509
  Serious: Yes (Hospitalization, Other)
  Sender: FDA-Public Use
  Company Number: PL-AUROBINDO-AUR-APL-2018-009641

PATIENT
  Age: 30 Year
  Sex: Female

DRUGS (11)
  1. VALPROIC ACID. [Suspect]
     Active Substance: VALPROIC ACID
     Dosage: UNK
     Route: 065
  2. VALPROIC ACID. [Suspect]
     Active Substance: VALPROIC ACID
     Dosage: 3000 MG, ONCE A DAY
     Route: 065
  3. VALPROIC ACID. [Suspect]
     Active Substance: VALPROIC ACID
     Dosage: 2000 UNK, UNK
     Route: 048
  4. LAMOTRIGINE. [Suspect]
     Active Substance: LAMOTRIGINE
     Indication: JUVENILE MYOCLONIC EPILEPSY
     Route: 065
  5. VALPROIC ACID. [Suspect]
     Active Substance: VALPROIC ACID
     Indication: SEIZURE
     Dosage: 2000 MG, ONCE A DAY
     Route: 065
  6. VALPROIC ACID. [Suspect]
     Active Substance: VALPROIC ACID
     Indication: JUVENILE MYOCLONIC EPILEPSY
     Dosage: 1000 MG, UNK
     Route: 065
  7. VALPROIC ACID. [Suspect]
     Active Substance: VALPROIC ACID
     Dosage: UNK
     Route: 042
  8. VALPROIC ACID. [Suspect]
     Active Substance: VALPROIC ACID
     Dosage: 1000 MG, UNK
     Route: 048
  9. VALPROIC ACID. [Suspect]
     Active Substance: VALPROIC ACID
     Dosage: 1000 MG, UNK
     Route: 048
  10. LEVETIRACETAM. [Suspect]
     Active Substance: LEVETIRACETAM
     Indication: JUVENILE MYOCLONIC EPILEPSY
     Route: 065
  11. VALPROIC ACID. [Suspect]
     Active Substance: VALPROIC ACID
     Dosage: UNK
     Route: 042

REACTIONS (7)
  - Seizure [Not Recovered/Not Resolved]
  - Petit mal epilepsy [Recovering/Resolving]
  - Malabsorption [Recovered/Resolved]
  - Drug level decreased [Recovered/Resolved]
  - Drug ineffective [Unknown]
  - Myoclonus [Recovering/Resolving]
  - Generalised tonic-clonic seizure [Recovering/Resolving]
